FAERS Safety Report 4655618-8 (Version None)
Quarter: 2005Q2

REPORT INFORMATION
  Report Type: 
  Country: None (occurrence: None)
  Receive Date: 20050505
  Receipt Date: 20050425
  Transmission Date: 20051028
  Serious: Yes (Other)
  Sender: FDA-Public Use
  Company Number: 22499

PATIENT
  Age: 81 Year
  Sex: Male

DRUGS (5)
  1. NIASPAN [Suspect]
     Indication: BLOOD CHOLESTEROL INCREASED
     Dosage: 1000 MG QHS PO
     Route: 048
     Dates: start: 20050214, end: 20050315
  2. ASPIRIN [Concomitant]
  3. LIPITOR [Concomitant]
  4. FOLTX [Concomitant]
  5. LUTEIN [Concomitant]

REACTIONS (4)
  - GASTRIC HAEMORRHAGE [None]
  - GASTRITIS [None]
  - HAEMATOCRIT DECREASED [None]
  - HAEMOGLOBIN DECREASED [None]
